FAERS Safety Report 15470046 (Version 10)
Quarter: 2019Q1

REPORT INFORMATION
  Report Type: Report from Study
  Country: US (occurrence: US)
  Receive Date: 20181005
  Receipt Date: 20190328
  Transmission Date: 20190417
  Serious: Yes (Hospitalization)
  Sender: FDA-Public Use
  Company Number: US-ACTELION-A-US2018-179636

PATIENT
  Age: 65 Year
  Sex: Female
  Weight: 74.83 kg

DRUGS (7)
  1. VELETRI [Suspect]
     Active Substance: EPOPROSTENOL
     Dosage: 14 NG/KG, PER MIN
     Route: 042
  2. DILTIAZEM. [Concomitant]
     Active Substance: DILTIAZEM
  3. OPSUMIT [Suspect]
     Active Substance: MACITENTAN
     Indication: PULMONARY HYPERTENSION
     Dosage: 10 MG, QD
     Route: 048
  4. VELETRI [Suspect]
     Active Substance: EPOPROSTENOL
     Dosage: 12 NG/KG, PER MIN
     Route: 042
  5. VELETRI [Suspect]
     Active Substance: EPOPROSTENOL
     Dosage: UNK
     Route: 042
  6. VELETRI [Suspect]
     Active Substance: EPOPROSTENOL
     Indication: PULMONARY HYPERTENSION
     Dosage: 13 NG/KG, PER MIN
     Route: 042
  7. COUMADIN [Concomitant]
     Active Substance: WARFARIN SODIUM

REACTIONS (25)
  - Fall [Unknown]
  - Migraine [Recovering/Resolving]
  - Bronchitis [Unknown]
  - Arthralgia [Unknown]
  - Cough [Unknown]
  - Palpitations [Recovering/Resolving]
  - Pain in jaw [Unknown]
  - Abdominal discomfort [Unknown]
  - Unevaluable event [Unknown]
  - Asthenia [Unknown]
  - Urinary tract infection [Unknown]
  - Feeling abnormal [Unknown]
  - Flushing [Recovering/Resolving]
  - Nightmare [Unknown]
  - Diarrhoea [Unknown]
  - Weight decreased [Unknown]
  - Abdominal pain [Unknown]
  - Limb injury [Unknown]
  - Device issue [Recovered/Resolved]
  - Headache [Unknown]
  - Dyspnoea [Unknown]
  - Rhinorrhoea [Unknown]
  - Vein disorder [Unknown]
  - Malaise [Unknown]
  - Pollakiuria [Unknown]

NARRATIVE: CASE EVENT DATE: 201810
